FAERS Safety Report 19814170 (Version 1)
Quarter: 2021Q3

REPORT INFORMATION
  Report Type: Spontaneous
  Country: US (occurrence: US)
  Receive Date: 20210907
  Receipt Date: 20210907
  Transmission Date: 20211014
  Serious: Yes (Death)
  Sender: FDA-Public Use
  Company Number: None

PATIENT
  Age: 69 Year
  Sex: Male

DRUGS (22)
  1. BOSULIF [Suspect]
     Active Substance: BOSUTINIB MONOHYDRATE
     Indication: CHRONIC MYELOID LEUKAEMIA
     Route: 048
     Dates: start: 20210804, end: 20210902
  2. BUMETANIDE. [Concomitant]
     Active Substance: BUMETANIDE
  3. HYDROXYCHLOR [Concomitant]
     Active Substance: HYDROXYCHLOROQUINE
  4. LEVOTHYROXIN [Concomitant]
     Active Substance: LEVOTHYROXINE
  5. LOTEMAX [Concomitant]
     Active Substance: LOTEPREDNOL ETABONATE
  6. PREDNISONE. [Concomitant]
     Active Substance: PREDNISONE
  7. ATORVASTATIN [Concomitant]
     Active Substance: ATORVASTATIN
  8. TADALAFIL. [Concomitant]
     Active Substance: TADALAFIL
  9. ATOMOXETINE. [Concomitant]
     Active Substance: ATOMOXETINE HYDROCHLORIDE
  10. PREDNISOLONE. [Concomitant]
     Active Substance: PREDNISOLONE
  11. PREGABALIN. [Concomitant]
     Active Substance: PREGABALIN
  12. TAMSULOSIN [Concomitant]
     Active Substance: TAMSULOSIN
  13. BRILINTA [Concomitant]
     Active Substance: TICAGRELOR
  14. RESTASIS EMU [Concomitant]
  15. FINASTERIDE. [Concomitant]
     Active Substance: FINASTERIDE
  16. FUROSEMIDE. [Concomitant]
     Active Substance: FUROSEMIDE
  17. METOPROL TAR [Concomitant]
  18. AMOXICILLIN. [Concomitant]
     Active Substance: AMOXICILLIN
  19. ERYTHROMYCIN OIN [Concomitant]
  20. AMPHET/DEXTR ER [Concomitant]
  21. DULOXETINE. [Concomitant]
     Active Substance: DULOXETINE
  22. POT CHLORIDE ER [Concomitant]

REACTIONS (1)
  - Death [None]

NARRATIVE: CASE EVENT DATE: 20210902
